FAERS Safety Report 16366292 (Version 1)
Quarter: 2019Q3

REPORT INFORMATION
  Report Type: Spontaneous
  Country: US (occurrence: US)
  Receive Date: 20190528
  Receipt Date: 20190528
  Transmission Date: 20191004
  Serious: No
  Sender: FDA-Public Use
  Company Number: None

PATIENT
  Age: 63 Year
  Sex: Female
  Weight: 68.4 kg

DRUGS (4)
  1. METFORMIN ER 500 MG TAB [Concomitant]
     Dates: start: 20151209
  2. LISINOPRIL-HCTZ (10/12.5 MG) TAB [Concomitant]
     Dates: start: 20151209
  3. BYDUREON [Suspect]
     Active Substance: EXENATIDE
     Indication: TYPE 2 DIABETES MELLITUS
     Dosage: ?          OTHER FREQUENCY:WEEKLY;?
     Route: 058
     Dates: start: 20190418, end: 20190523
  4. PAROXETINE 20 MG TABLET [Concomitant]
     Dates: start: 20151209

REACTIONS (1)
  - Skin mass [None]

NARRATIVE: CASE EVENT DATE: 20190523
